FAERS Safety Report 5750517-2 (Version None)
Quarter: 2008Q2

REPORT INFORMATION
  Report Type: 
  Country: None (occurrence: None)
  Receive Date: 20080523
  Receipt Date: 20080523
  Transmission Date: 20081010
  Serious: Yes (Hospitalization)
  Sender: FDA-Public Use
  Company Number: None

PATIENT
  Age: 63 Year
  Sex: Male
  Weight: 50 kg

DRUGS (1)
  1. NEXAVAR [Suspect]
     Indication: HEPATIC NEOPLASM MALIGNANT
     Dosage: 800MG DAILY  4 DOSES PO
     Route: 048
     Dates: start: 20080507, end: 20080518

REACTIONS (4)
  - ANXIETY [None]
  - DEHYDRATION [None]
  - HEPATIC ENCEPHALOPATHY [None]
  - HICCUPS [None]
